FAERS Safety Report 11805180 (Version 1)
Quarter: 2015Q4

REPORT INFORMATION
  Report Type: Spontaneous
  Country: TR (occurrence: TR)
  Receive Date: 20151206
  Receipt Date: 20151206
  Transmission Date: 20160305
  Serious: Yes (Life-Threatening, Hospitalization)
  Sender: FDA-Public Use
  Company Number: TR-MYLANLABS-2015M1043180

PATIENT

DRUGS (3)
  1. BLEOMYCIN [Suspect]
     Active Substance: BLEOMYCIN SULFATE
     Indication: YOLK SAC TUMOUR SITE UNSPECIFIED
     Dosage: 30MG ON DAY 1,8 AND 15 IN EVERY 21 DAYS CYCLE
     Route: 065
  2. CISPLATIN. [Suspect]
     Active Substance: CISPLATIN
     Indication: YOLK SAC TUMOUR SITE UNSPECIFIED
     Dosage: 100 MG/M2 ON FIRST 5 DAYS IN EVERY 21 DAYS
     Route: 065
  3. ETOPOSIDE. [Suspect]
     Active Substance: ETOPOSIDE
     Indication: YOLK SAC TUMOUR SITE UNSPECIFIED
     Dosage: 100 MG/M2 ON FIRST 5 DAYS IN EVERY 21 DAYS
     Route: 065

REACTIONS (1)
  - Acute myocardial infarction [Recovered/Resolved]
